FAERS Safety Report 9825923 (Version 1)
Quarter: 2014Q1

REPORT INFORMATION
  Report Type: Spontaneous
  Country: CA (occurrence: CA)
  Receive Date: 20140117
  Receipt Date: 20140117
  Transmission Date: 20141002
  Serious: Yes (Other)
  Sender: FDA-Public Use
  Company Number: CA-AMGEN-CANSP2014002138

PATIENT
  Age: 74 Year
  Sex: Female

DRUGS (4)
  1. PROLIA [Suspect]
     Indication: OSTEOPOROSIS POSTMENOPAUSAL
     Dosage: UNK
     Route: 065
     Dates: start: 20130211
  2. HYDROCHLOROTHIAZIDE [Concomitant]
     Dosage: 25 MG, UNK
  3. VITAMIN D                          /00107901/ [Concomitant]
     Dosage: 1000 IU, UNK
  4. CALCIUM [Concomitant]
     Dosage: 600 MG, UNK

REACTIONS (8)
  - Chest pain [Recovered/Resolved]
  - Arthritis [Not Recovered/Not Resolved]
  - Pain [Unknown]
  - Neck pain [Unknown]
  - Muscle spasms [Unknown]
  - Local swelling [Recovered/Resolved]
  - Pain in extremity [Unknown]
  - Arthralgia [Unknown]
